FAERS Safety Report 5399416-9 (Version None)
Quarter: 2007Q3

REPORT INFORMATION
  Report Type: 
  Country: None (occurrence: None)
  Receive Date: 20070727
  Receipt Date: 20070713
  Transmission Date: 20080115
  Serious: Yes (Other)
  Sender: FDA-Public Use
  Company Number: BE-AMGEN-US235980

PATIENT
  Sex: Female

DRUGS (2)
  1. ENBREL [Suspect]
     Indication: RHEUMATOID ARTHRITIS
     Route: 058
     Dates: start: 20040930
  2. PREDNISOLONE [Concomitant]
     Dosage: 1 PER DAY
     Route: 048
     Dates: start: 20040701

REACTIONS (1)
  - ABORTION SPONTANEOUS [None]
